FAERS Safety Report 5903526-4 (Version None)
Quarter: 2008Q3

REPORT INFORMATION
  Report Type: 
  Country: None (occurrence: None)
  Receive Date: 20080930
  Receipt Date: 20080922
  Transmission Date: 20090109
  Serious: Yes (Hospitalization)
  Sender: FDA-Public Use
  Company Number: HQWYE888312DEC06

PATIENT
  Age: 23 Year
  Sex: Female

DRUGS (2)
  1. PREMARIN [Suspect]
     Indication: OVARIAN FAILURE
     Dosage: 0.625MG, FREQUENCY NOT PROVIDED
  2. MEDROXYPROGESTERONE ACETATE [Suspect]
     Indication: OVARIAN FAILURE
     Dosage: 10MG CYCLIC, FREQUENCY NOT PROVIDED

REACTIONS (2)
  - ANAEMIA [None]
  - UTERINE LEIOMYOMA [None]
